FAERS Safety Report 22191608 (Version 6)
Quarter: 2024Q3

REPORT INFORMATION
  Report Type: Spontaneous
  Country: CA (occurrence: CA)
  Receive Date: 20230410
  Receipt Date: 20240826
  Transmission Date: 20241016
  Serious: Yes (Hospitalization, Other)
  Sender: CELLTRION
  Company Number: CA-CELLTRION INC.-2022CA012626

PATIENT

DRUGS (19)
  1. INFLECTRA [Suspect]
     Active Substance: INFLIXIMAB-DYYB
     Indication: Crohn^s disease
     Dosage: 500 MG,Q 0,2,6 WEEK THEN EVERY 8 WEEKS
     Route: 042
     Dates: start: 20221019
  2. INFLECTRA [Suspect]
     Active Substance: INFLIXIMAB-DYYB
     Dosage: 500 MG,Q 0,2,6 WEEK THEN EVERY 8 WEEKS
     Route: 042
     Dates: start: 20221101
  3. INFLECTRA [Suspect]
     Active Substance: INFLIXIMAB-DYYB
     Dosage: 500 MG,Q 0,2,6 WEEK THEN EVERY 8 WEEKS
     Route: 042
     Dates: start: 20221101, end: 20221101
  4. INFLECTRA [Suspect]
     Active Substance: INFLIXIMAB-DYYB
     Dosage: 500 MG,Q 0,2,6 WEEK THEN EVERY 8 WEEKS
     Route: 042
     Dates: start: 20221206
  5. INFLECTRA [Suspect]
     Active Substance: INFLIXIMAB-DYYB
     Dosage: 500 MG EVERY 8 WEEKS
     Route: 042
     Dates: start: 20230130, end: 20230130
  6. INFLECTRA [Suspect]
     Active Substance: INFLIXIMAB-DYYB
     Dosage: 500 MG EVERY 8 WEEKS
     Route: 042
     Dates: start: 20230328, end: 20230328
  7. INFLECTRA [Suspect]
     Active Substance: INFLIXIMAB-DYYB
     Dosage: 500 MG, Q 0,2,6 WEEK THEN EVERY 8 WEEKS
     Route: 042
     Dates: start: 20230718
  8. INFLECTRA [Suspect]
     Active Substance: INFLIXIMAB-DYYB
     Dosage: 500 MG, Q 0,2,6 WEEK THEN EVERY 8 WEEKS (500MG, 8 WEEKS)
     Route: 042
     Dates: start: 20230918
  9. INFLECTRA [Suspect]
     Active Substance: INFLIXIMAB-DYYB
     Dosage: 500 MG, Q 0,2,6 WEEK THEN EVERY 8 WEEKS (500MG, 8 WEEKS)
     Route: 042
     Dates: start: 20230918
  10. INFLECTRA [Suspect]
     Active Substance: INFLIXIMAB-DYYB
     Dosage: 500 MG Q 0,2,6 WEEK THEN EVERY 8 WEEKS
     Route: 042
     Dates: start: 20231116
  11. INFLECTRA [Suspect]
     Active Substance: INFLIXIMAB-DYYB
     Dosage: 500 MG Q 0,2,6 WEEK THEN EVERY 8 WEEKS (500MG, 13 WEEKS AND 5 DAYS)
     Route: 042
     Dates: start: 20240220
  12. INFLECTRA [Suspect]
     Active Substance: INFLIXIMAB-DYYB
     Dosage: 500 MG Q 0,2,6 WEEK THEN EVERY 8 WEEKS (500MG, 13 WEEKS AND 5 DAYS)
     Route: 042
     Dates: start: 20240220
  13. INFLECTRA [Suspect]
     Active Substance: INFLIXIMAB-DYYB
     Dosage: 500 MG Q 0,2,6 WEEK THEN EVERY 8 WEEKS (500MG, 13 WEEKS AND 5 DAYS)
     Route: 042
     Dates: start: 20240220
  14. INFLECTRA [Suspect]
     Active Substance: INFLIXIMAB-DYYB
     Dosage: 500 MG Q 0,2,6 WEEK THEN EVERY 8 WEEKS
     Route: 042
     Dates: start: 20240611
  15. INFLECTRA [Suspect]
     Active Substance: INFLIXIMAB-DYYB
     Dosage: 500MG AFTER 9 WEEKS AND 2 DAYS (Q 0,2,6 WEEK THEN EVERY 8 WEEKS )
     Route: 042
     Dates: start: 20240815
  16. CIPRALEX [Concomitant]
     Active Substance: ESCITALOPRAM OXALATE
     Dosage: 1 DF UNKNOWN
  17. GLUCOSAMINE [Concomitant]
     Active Substance: GLUCOSAMINE
     Dosage: 1 DF UNKNOWN
  18. OZEMPIC [Concomitant]
     Active Substance: SEMAGLUTIDE
     Dosage: 1 DF
  19. SEROQUEL [Concomitant]
     Active Substance: QUETIAPINE FUMARATE
     Dosage: 1 DF UNKNOWN

REACTIONS (14)
  - Gastrointestinal disorder [Recovered/Resolved]
  - Fall [Not Recovered/Not Resolved]
  - Hypertension [Not Recovered/Not Resolved]
  - Shoulder operation [Unknown]
  - Weight increased [Not Recovered/Not Resolved]
  - Blood pressure systolic increased [Not Recovered/Not Resolved]
  - Heart rate decreased [Recovered/Resolved]
  - Arthralgia [Recovered/Resolved]
  - Condition aggravated [Recovered/Resolved]
  - Heart rate decreased [Not Recovered/Not Resolved]
  - Weight decreased [Unknown]
  - Off label use [Unknown]
  - Intentional product use issue [Unknown]
  - Inappropriate schedule of product administration [Unknown]

NARRATIVE: CASE EVENT DATE: 20221101
